FAERS Safety Report 5214778-0 (Version None)
Quarter: 2007Q1

REPORT INFORMATION
  Report Type: 
  Country: None (occurrence: None)
  Receive Date: 20070122
  Receipt Date: 20070122
  Transmission Date: 20070707
  Serious: Yes (Life-Threatening, Hospitalization)
  Sender: FDA-Public Use
  Company Number: None

PATIENT
  Age: 47 Year
  Sex: Female
  Weight: 64.8644 kg

DRUGS (1)
  1. INTERFERON [Suspect]

REACTIONS (9)
  - CHEST PAIN [None]
  - COGNITIVE DISORDER [None]
  - DEAFNESS [None]
  - DRUG INEFFECTIVE [None]
  - FLANK PAIN [None]
  - HEPATOMEGALY [None]
  - MEMORY IMPAIRMENT [None]
  - PAIN IN EXTREMITY [None]
  - SUICIDAL IDEATION [None]
